FAERS Safety Report 13647510 (Version 2)
Quarter: 2017Q2

REPORT INFORMATION
  Report Type: Spontaneous
  Country: JP (occurrence: JP)
  Receive Date: 20170613
  Receipt Date: 20170623
  Transmission Date: 20170830
  Serious: Yes (Death, Hospitalization)
  Sender: FDA-Public Use
  Company Number: JP-NOVOPROD-532776

PATIENT
  Age: 64 Year
  Sex: Male

DRUGS (6)
  1. LULICON [Concomitant]
     Active Substance: LULICONAZOLE
     Indication: TINEA PEDIS
     Dosage: UNK
     Route: 065
  2. NOVORAPID [Suspect]
     Active Substance: INSULIN ASPART
     Dosage: 37-39 IU/DAY
     Route: 058
     Dates: start: 20101109
  3. UREPEARL [Concomitant]
     Active Substance: UREA
     Indication: PALMOPLANTAR KERATODERMA
     Dosage: UNK
     Route: 065
  4. TRESIBA CHU [Suspect]
     Active Substance: INSULIN DEGLUDEC
     Indication: TYPE 1 DIABETES MELLITUS
     Dosage: 24 IU, QD
     Route: 058
     Dates: start: 20130326
  5. ALESION [Concomitant]
     Active Substance: EPINASTINE HYDROCHLORIDE
     Indication: SEASONAL ALLERGY
     Dosage: 10 MG
     Route: 048
  6. NOVORAPID [Suspect]
     Active Substance: INSULIN ASPART
     Indication: TYPE 1 DIABETES MELLITUS
     Dosage: 23 IU, BID
     Route: 058
     Dates: start: 20080214

REACTIONS (2)
  - Gastric cancer [Fatal]
  - Gastric ulcer [Not Recovered/Not Resolved]

NARRATIVE: CASE EVENT DATE: 20150323
